FAERS Safety Report 19760525 (Version 2)
Quarter: 2022Q2

REPORT INFORMATION
  Report Type: Report from Study
  Country: US (occurrence: US)
  Receive Date: 20210830
  Receipt Date: 20220524
  Transmission Date: 20220721
  Serious: Yes (Other)
  Sender: FDA-Public Use
  Company Number: US-NOVARTISTESTPH-NVSC2021US160278

PATIENT
  Sex: Male

DRUGS (2)
  1. MYFORTIC [Suspect]
     Active Substance: MYCOPHENOLATE SODIUM
     Indication: Product used for unknown indication
     Dosage: UNK
     Route: 065
  2. MYFORTIC [Suspect]
     Active Substance: MYCOPHENOLATE SODIUM
     Dosage: 540 MG, BID (180MG TAB + ONE 360MG TAB (TOTAL 540MG))
     Route: 048

REACTIONS (5)
  - Pneumonia [Unknown]
  - COVID-19 [Unknown]
  - Hypersensitivity [Unknown]
  - Ear infection [Unknown]
  - Wrong technique in product usage process [Unknown]
